FAERS Safety Report 7883408-1 (Version None)
Quarter: 2011Q4

REPORT INFORMATION
  Report Type: 
  Country: None (occurrence: None)
  Receive Date: 20111102
  Receipt Date: 20111026
  Transmission Date: 20120403
  Serious: Yes (Other)
  Sender: FDA-Public Use
  Company Number: US-JNJFOC-20111011908

PATIENT
  Sex: Male
  Weight: 129.28 kg

DRUGS (1)
  1. STELARA [Suspect]
     Indication: PSORIASIS
     Route: 058
     Dates: start: 20100611, end: 20110127

REACTIONS (2)
  - HYPERTENSION [None]
  - DRUG INEFFECTIVE [None]
